FAERS Safety Report 9281731 (Version 2)
Quarter: 2013Q2

REPORT INFORMATION
  Report Type: Spontaneous
  Country: TR (occurrence: TR)
  Receive Date: 20130510
  Receipt Date: 20130517
  Transmission Date: 20140414
  Serious: Yes (Hospitalization, Other)
  Sender: FDA-Public Use
  Company Number: TR-AMGEN-TURSP2012002505

PATIENT
  Age: 54 Year
  Sex: Female

DRUGS (1)
  1. ENBREL [Suspect]
     Indication: ANKYLOSING SPONDYLITIS
     Dosage: 50 MG, QWK
     Route: 058
     Dates: start: 20110118, end: 201301

REACTIONS (8)
  - Myocardial infarction [Recovered/Resolved]
  - Procedural haemorrhage [Unknown]
  - Coronary artery disease [Unknown]
  - Cardiac hypertrophy [Not Recovered/Not Resolved]
  - Pain [Unknown]
  - Post procedural infection [Not Recovered/Not Resolved]
  - Infection [Unknown]
  - Influenza [Not Recovered/Not Resolved]
